FAERS Safety Report 17719921 (Version 1)
Quarter: 2020Q2

REPORT INFORMATION
  Report Type: Spontaneous
  Country: IT (occurrence: IT)
  Receive Date: 20200428
  Receipt Date: 20200428
  Transmission Date: 20200714
  Serious: Yes (Other)
  Sender: FDA-Public Use
  Company Number: IT-MYLANLABS-2020M1041843

PATIENT
  Age: 57 Year
  Sex: Female

DRUGS (1)
  1. ZOLEDRONIC ACID [Suspect]
     Active Substance: ZOLEDRONIC ACID
     Indication: METASTASES TO BONE
     Dosage: 4 MILLIGRAM, QD
     Route: 042
     Dates: start: 2016, end: 201806

REACTIONS (4)
  - Oroantral fistula [Unknown]
  - Inflammation [Unknown]
  - Osteonecrosis of jaw [Unknown]
  - Pain [Unknown]

NARRATIVE: CASE EVENT DATE: 201908
